FAERS Safety Report 11072248 (Version 1)
Quarter: 2015Q2

REPORT INFORMATION
  Report Type: Spontaneous
  Country: PK (occurrence: PK)
  Receive Date: 20150428
  Receipt Date: 20150428
  Transmission Date: 20150821
  Serious: Yes (Life-Threatening, Other)
  Sender: FDA-Public Use
  Company Number: PK-WATSON-2015-08347

PATIENT
  Age: 7 Year
  Sex: Female

DRUGS (1)
  1. LINCOMYCIN (UNKNOWN) [Suspect]
     Active Substance: LINCOMYCIN
     Indication: URTICARIA
     Dosage: UNK, SINGLE
     Route: 030

REACTIONS (1)
  - Paralysis [Recovered/Resolved]
